FAERS Safety Report 15524205 (Version 1)
Quarter: 2018Q4

REPORT INFORMATION
  Report Type: Spontaneous
  Country: CA (occurrence: CA)
  Receive Date: 20181018
  Receipt Date: 20181018
  Transmission Date: 20190205
  Serious: Yes (Death)
  Sender: FDA-Public Use
  Company Number: CA-PURDUE-CAN-2018-0009098

PATIENT
  Age: 59 Year
  Sex: Male

DRUGS (13)
  1. APO-LEVOCARB [Concomitant]
     Active Substance: CARBIDOPA\LEVODOPA
  2. DOPAMINE [Suspect]
     Active Substance: DOPAMINE\DOPAMINE HYDROCHLORIDE
     Indication: PRODUCT USED FOR UNKNOWN INDICATION
     Dosage: UNK
     Route: 065
  3. PIROXICAM. [Concomitant]
     Active Substance: PIROXICAM
  4. IRON [Concomitant]
     Active Substance: IRON
     Indication: MINERAL SUPPLEMENTATION
  5. CLONAZEPAM. [Concomitant]
     Active Substance: CLONAZEPAM
  6. SENOKOT [Concomitant]
     Active Substance: SENNOSIDES
     Indication: SUPPLEMENTATION THERAPY
  7. ZOPICLONE [Concomitant]
     Active Substance: ZOPICLONE
     Indication: SUPPLEMENTATION THERAPY
  8. AZILECT [Concomitant]
     Active Substance: RASAGILINE MESYLATE
  9. DILAUDID [Suspect]
     Active Substance: HYDROMORPHONE HYDROCHLORIDE
     Indication: PRODUCT USED FOR UNKNOWN INDICATION
     Dosage: UNK
     Route: 065
  10. DUODOPA [Suspect]
     Active Substance: CARBIDOPA\LEVODOPA
     Indication: PARKINSON^S DISEASE
     Dosage: UNK
     Route: 050
  11. PRAMIPEXOLE. [Concomitant]
     Active Substance: PRAMIPEXOLE
     Indication: SUPPLEMENTATION THERAPY
  12. DOCUSATE SODIUM. [Concomitant]
     Active Substance: DOCUSATE SODIUM
     Indication: SUPPLEMENTATION THERAPY
  13. DOMPERIDONE [Concomitant]
     Active Substance: DOMPERIDONE
     Indication: SUPPLEMENTATION THERAPY

REACTIONS (2)
  - Completed suicide [Fatal]
  - Drug effect incomplete [Fatal]
